FAERS Safety Report 18526933 (Version 4)
Quarter: 2020Q4

REPORT INFORMATION
  Report Type: Report from Study
  Country: NL (occurrence: NL)
  Receive Date: 20201120
  Receipt Date: 20201215
  Transmission Date: 20210114
  Serious: Yes (Other)
  Sender: FDA-Public Use
  Company Number: NL-AMGEN-NLDSL2020185546

PATIENT
  Age: 64 Year
  Sex: Female

DRUGS (2)
  1. NPLATE [Suspect]
     Active Substance: ROMIPLOSTIM
     Indication: IMMUNE THROMBOCYTOPENIA
     Dosage: 500 MICROGRAM, QWK
     Route: 058
  2. NPLATE [Suspect]
     Active Substance: ROMIPLOSTIM
     Dosage: 500 MICROGRAM, QWK
     Route: 058

REACTIONS (2)
  - Blood test abnormal [Recovering/Resolving]
  - Thrombocytosis [Not Recovered/Not Resolved]

NARRATIVE: CASE EVENT DATE: 20201204
